FAERS Safety Report 12468134 (Version 9)
Quarter: 2022Q4

REPORT INFORMATION
  Report Type: Spontaneous
  Country: US (occurrence: US)
  Receive Date: 20160615
  Receipt Date: 20221227
  Transmission Date: 20230112
  Serious: Yes (Hospitalization, Other)
  Sender: FDA-Public Use
  Company Number: US-PFIZER INC-2016297763

PATIENT
  Age: 70 Year
  Sex: Female
  Weight: 56.961 kg

DRUGS (2)
  1. PREMARIN [Suspect]
     Active Substance: ESTROGENS, CONJUGATED
     Indication: Menopausal symptoms
     Dosage: 0.625 MG, 2 TO 3 TIMES A WEEK
     Dates: start: 2006
  2. PREMARIN [Suspect]
     Active Substance: ESTROGENS, CONJUGATED
     Indication: Atrophic vulvovaginitis
     Dosage: 0.625 MG, 2X/WEEK (TWICE A WEEK 90 DAYS)
     Route: 067
     Dates: start: 20150624

REACTIONS (4)
  - Vaginal cancer stage 0 [Recovered/Resolved]
  - Off label use [Unknown]
  - Product dispensing issue [Unknown]
  - Back disorder [Unknown]

NARRATIVE: CASE EVENT DATE: 20060101
